FAERS Safety Report 4909323-0 (Version None)
Quarter: 2006Q1

REPORT INFORMATION
  Report Type: 
  Country: None (occurrence: None)
  Receive Date: 20060213
  Receipt Date: 20051114
  Transmission Date: 20060701
  Serious: Yes (Hospitalization, Other)
  Sender: FDA-Public Use
  Company Number: US-GLAXOSMITHKLINE-A0582200A

PATIENT
  Age: 44 Year
  Sex: Male

DRUGS (11)
  1. ZIAGEN [Suspect]
     Indication: NAUSEA
     Dosage: 300MG SINGLE DOSE
     Route: 048
     Dates: start: 20051113, end: 20051113
  2. DAPSONE [Concomitant]
  3. NORVIR [Concomitant]
  4. VIREAD [Concomitant]
  5. DIDANOSINE [Concomitant]
  6. AZITHROMYCIN [Concomitant]
  7. ENALAPRIL [Concomitant]
  8. DIFLUCAN [Concomitant]
  9. IV FLUIDS [Concomitant]
  10. STEROIDS [Concomitant]
  11. BENADRYL [Concomitant]

REACTIONS (21)
  - AGRANULOCYTOSIS [None]
  - ANAEMIA [None]
  - BRONCHOSPASM [None]
  - CHILLS [None]
  - DIARRHOEA [None]
  - DIZZINESS [None]
  - DRUG ADMINISTRATION ERROR [None]
  - DYSPNOEA [None]
  - EOSINOPHILIA [None]
  - HEADACHE [None]
  - HYPERSENSITIVITY [None]
  - HYPOAESTHESIA [None]
  - HYPOTENSION [None]
  - MYALGIA [None]
  - NAUSEA [None]
  - PARAESTHESIA [None]
  - PYREXIA [None]
  - RASH MACULO-PAPULAR [None]
  - THROMBOCYTOPENIA [None]
  - URTICARIA [None]
  - VOMITING [None]
